FAERS Safety Report 5680954-6 (Version None)
Quarter: 2008Q1

REPORT INFORMATION
  Report Type: 
  Country: None (occurrence: None)
  Receive Date: 20080326
  Receipt Date: 20080314
  Transmission Date: 20080703
  Serious: Yes (Other)
  Sender: FDA-Public Use
  Company Number: GB-PFIZER INC-2008024573

PATIENT
  Sex: Female

DRUGS (2)
  1. METHYLPREDNISOLONE ACETATE [Suspect]
     Indication: PLANTAR FASCIITIS
     Route: 042
  2. METHYLPREDNISOLONE ACETATE [Suspect]
     Indication: MULTIPLE SCLEROSIS

REACTIONS (4)
  - HYPERSENSITIVITY [None]
  - LIP SWELLING [None]
  - PLANTAR FASCIITIS [None]
  - SWELLING FACE [None]
